FAERS Safety Report 6648370-8 (Version None)
Quarter: 2010Q1

REPORT INFORMATION
  Report Type: 
  Country: None (occurrence: None)
  Receive Date: 20100318
  Receipt Date: 20100304
  Transmission Date: 20100710
  Serious: Yes (Hospitalization, Other)
  Sender: FDA-Public Use
  Company Number: 2010-00223

PATIENT
  Age: 69 Year
  Sex: Female
  Weight: 55.3 kg

DRUGS (2)
  1. SIMVASTATIN [Suspect]
     Indication: BLOOD CHOLESTEROL INCREASED
     Dosage: 40 MG, ORAL
     Route: 048
     Dates: start: 20090820
  2. AMLODIPINE [Concomitant]

REACTIONS (2)
  - PERICARDITIS [None]
  - SEROSITIS [None]
